FAERS Safety Report 15519088 (Version 1)
Quarter: 2018Q4

REPORT INFORMATION
  Report Type: Spontaneous
  Country: US (occurrence: US)
  Receive Date: 20181017
  Receipt Date: 20181017
  Transmission Date: 20190205
  Serious: No
  Sender: FDA-Public Use
  Company Number: US-SA-2018SA285536

PATIENT
  Age: 76 Year
  Sex: Male

DRUGS (1)
  1. SELSUN BLUE ITCHY DRY SCALP [Suspect]
     Active Substance: PYRITHIONE ZINC

REACTIONS (2)
  - Eye irritation [Unknown]
  - Pruritus [Unknown]
